FAERS Safety Report 14871188 (Version 14)
Quarter: 2023Q4

REPORT INFORMATION
  Report Type: Spontaneous
  Country: US (occurrence: US)
  Receive Date: 20180509
  Receipt Date: 20231215
  Transmission Date: 20240109
  Serious: Yes (Hospitalization, Other)
  Sender: FDA-Public Use
  Company Number: US-PFIZER INC-2018185411

PATIENT
  Age: 62 Year
  Sex: Male
  Weight: 81.65 kg

DRUGS (6)
  1. XELJANZ XR [Suspect]
     Active Substance: TOFACITINIB CITRATE
     Indication: Rheumatoid arthritis
     Dosage: 11 MG 1 TABLET ORALLY ONCE A DAY
     Route: 048
     Dates: start: 1998
  2. XELJANZ XR [Suspect]
     Active Substance: TOFACITINIB CITRATE
     Dosage: 11 MG, DAILY
     Route: 048
     Dates: start: 201803
  3. XELJANZ XR [Suspect]
     Active Substance: TOFACITINIB CITRATE
     Dosage: 11 MG
     Route: 048
  4. METHOTREXATE [Concomitant]
     Active Substance: METHOTREXATE
     Dosage: UNK
     Dates: start: 1993, end: 2021
  5. METHOTREXATE [Concomitant]
     Active Substance: METHOTREXATE
     Dosage: 6 DF, UNK
  6. METHOTREXATE [Concomitant]
     Active Substance: METHOTREXATE
     Dosage: 5 DF, UNK

REACTIONS (12)
  - Limb injury [Not Recovered/Not Resolved]
  - Skin laceration [Not Recovered/Not Resolved]
  - Sinusitis [Recovered/Resolved]
  - Type 2 diabetes mellitus [Not Recovered/Not Resolved]
  - Therapeutic response unexpected [Recovered/Resolved]
  - Hair growth abnormal [Recovered/Resolved]
  - Upper respiratory tract infection [Recovered/Resolved]
  - Mean cell volume increased [Unknown]
  - Hypoacusis [Not Recovered/Not Resolved]
  - Blood pressure increased [Unknown]
  - Arthralgia [Not Recovered/Not Resolved]
  - Musculoskeletal discomfort [Not Recovered/Not Resolved]

NARRATIVE: CASE EVENT DATE: 20030101
